FAERS Safety Report 14878798 (Version 1)
Quarter: 2018Q2

REPORT INFORMATION
  Report Type: Spontaneous
  Country: US (occurrence: US)
  Receive Date: 20180511
  Receipt Date: 20180511
  Transmission Date: 20180711
  Serious: No
  Sender: FDA-Public Use
  Company Number: US-CELGENEUS-USA-20180501624

PATIENT
  Age: 32 Year
  Sex: Female

DRUGS (1)
  1. OTEZLA [Suspect]
     Active Substance: APREMILAST
     Indication: PSORIASIS
     Route: 048
     Dates: start: 20180313, end: 20180502

REACTIONS (8)
  - Anxiety [Unknown]
  - Dizziness [Unknown]
  - Weight decreased [Unknown]
  - Dyspepsia [Unknown]
  - Somnolence [Unknown]
  - Unevaluable event [Unknown]
  - Vomiting [Unknown]
  - Abdominal pain upper [Unknown]

NARRATIVE: CASE EVENT DATE: 20180313
